FAERS Safety Report 5896325-3 (Version None)
Quarter: 2008Q3

REPORT INFORMATION
  Report Type: 
  Country: None (occurrence: None)
  Receive Date: 20080924
  Receipt Date: 20070827
  Transmission Date: 20090109
  Serious: Yes (Other)
  Sender: FDA-Public Use
  Company Number: US-ASTRAZENECA-2007UW20409

PATIENT
  Age: 56 Year
  Sex: Female
  Weight: 59 kg

DRUGS (6)
  1. SEROQUEL [Suspect]
     Indication: BIPOLAR DISORDER
     Route: 048
     Dates: start: 20010101
  2. SEROQUEL [Suspect]
     Indication: SCHIZOPHRENIA
     Route: 048
     Dates: start: 20010101
  3. SEROQUEL [Suspect]
     Indication: DEPRESSION
     Route: 048
     Dates: start: 20010101
  4. RISPERDAL [Concomitant]
     Indication: BIPOLAR DISORDER
  5. RISPERDAL [Concomitant]
     Indication: SCHIZOPHRENIA
  6. RISPERDAL [Concomitant]
     Indication: DEPRESSION

REACTIONS (2)
  - DIABETES MELLITUS [None]
  - PANCREATITIS [None]
